FAERS Safety Report 18937386 (Version 2)
Quarter: 2021Q2

REPORT INFORMATION
  Report Type: Spontaneous
  Country: FR (occurrence: FR)
  Receive Date: 20210225
  Receipt Date: 20210429
  Transmission Date: 20210717
  Serious: Yes (Hospitalization, Other)
  Sender: FDA-Public Use
  Company Number: FR-BRISTOL-MYERS SQUIBB COMPANY-BMS-2021-016526

PATIENT
  Age: 83 Year
  Sex: Male

DRUGS (9)
  1. DEPAKINE CHRONO [Interacting]
     Active Substance: VALPROATE SODIUM
     Dosage: 2000 MILLIGRAM, QD
     Route: 065
  2. KARDEGIC [Concomitant]
     Active Substance: ASPIRIN DL-LYSINE
     Indication: PRODUCT USED FOR UNKNOWN INDICATION
     Dosage: UNK
     Route: 065
  3. DEPAKINE CHRONO [Interacting]
     Active Substance: VALPROATE SODIUM
     Dosage: 1000 MILLIGRAM, BID (ONE IN THE MORNING AND ONE IN THE EVENING)
     Route: 065
  4. PERMIXON [Concomitant]
     Active Substance: HERBALS\SAW PALMETTO
     Indication: PRODUCT USED FOR UNKNOWN INDICATION
     Dosage: UNK
     Route: 065
  5. AMLOR [Concomitant]
     Active Substance: AMLODIPINE BESYLATE
     Indication: PRODUCT USED FOR UNKNOWN INDICATION
     Dosage: UNK
     Route: 065
  6. XATRAL [Concomitant]
     Active Substance: ALFUZOSIN
     Indication: PRODUCT USED FOR UNKNOWN INDICATION
     Dosage: UNK
     Route: 065
  7. MIANSERIN [Concomitant]
     Active Substance: MIANSERIN
     Indication: PRODUCT USED FOR UNKNOWN INDICATION
     Dosage: UNK
     Route: 065
  8. ELIQUIS [Suspect]
     Active Substance: APIXABAN
     Indication: CEREBROVASCULAR ACCIDENT PROPHYLAXIS
     Dosage: UNK
     Route: 065
  9. DEPAKINE CHRONO [Interacting]
     Active Substance: VALPROATE SODIUM
     Indication: EPILEPSY
     Dosage: 1500 MILLIGRAM, BID (ONE IN THE MORNING AND ONE IN THE EVENING)
     Route: 065

REACTIONS (8)
  - Tremor [Unknown]
  - Weight decreased [Unknown]
  - Drug interaction [Unknown]
  - Epilepsy [Unknown]
  - COVID-19 [Unknown]
  - Pneumonia [Unknown]
  - Dyskinesia [Unknown]
  - Haemorrhoids [Unknown]

NARRATIVE: CASE EVENT DATE: 20200725
